FAERS Safety Report 6924830-7 (Version None)
Quarter: 2010Q3

REPORT INFORMATION
  Report Type: 
  Country: None (occurrence: None)
  Receive Date: 20100816
  Receipt Date: 20100806
  Transmission Date: 20110219
  Serious: Yes (Life-Threatening, Hospitalization, Other)
  Sender: FDA-Public Use
  Company Number: US-ELI_LILLY_AND_COMPANY-US201004003501

PATIENT
  Sex: Female
  Weight: 46.485 kg

DRUGS (33)
  1. PEMETREXED [Suspect]
     Indication: NON-SMALL CELL LUNG CANCER
     Dosage: 500 MG/M2, OTHER
     Route: 042
     Dates: start: 20100107, end: 20100318
  2. PEMETREXED [Suspect]
     Dosage: 500 MG/M2, OTHER
     Route: 042
     Dates: start: 20100408
  3. CARBOPLATIN [Suspect]
     Indication: NON-SMALL CELL LUNG CANCER
     Dosage: 6 D/F, OTHER
     Route: 042
     Dates: start: 20100107, end: 20100318
  4. BEVACIZUMAB [Suspect]
     Indication: NON-SMALL CELL LUNG CANCER
     Dosage: 15 MG/KG, OTHER
     Route: 042
     Dates: start: 20100107, end: 20100318
  5. BEVACIZUMAB [Suspect]
     Dosage: 15 MG/KG, OTHER
     Route: 042
     Dates: start: 20100408
  6. LORAZEPAM [Concomitant]
     Indication: NAUSEA
     Dates: start: 20100107
  7. FOLIC ACID [Concomitant]
     Indication: SUPPLEMENTATION THERAPY
     Dosage: 1 MG, DAILY (1/D)
     Dates: start: 20091231
  8. VITAMIN B-12 [Concomitant]
     Indication: SUPPLEMENTATION THERAPY
     Dosage: 1 MG, OTHER
     Route: 030
     Dates: start: 20091231
  9. AMLODIPINE [Concomitant]
     Indication: HYPERTENSION
     Dosage: 5 MG, UNK
     Dates: start: 20100119
  10. ARIXTRA [Concomitant]
     Indication: PROPHYLAXIS
     Dosage: UNK, UNK
     Dates: start: 20100402, end: 20100410
  11. ZOMETA [Concomitant]
     Indication: METASTASIS
     Dates: start: 20100408
  12. DILTIAZEM CD [Concomitant]
  13. ALVEOLEX [Concomitant]
  14. METRONIDAZOLE [Concomitant]
     Indication: PNEUMONIA
     Dosage: UNK, UNK
     Dates: start: 20100402
  15. TOLMETIN [Concomitant]
     Indication: RHEUMATOID ARTHRITIS
     Dosage: UNK, UNK
     Dates: start: 19840101
  16. GLUCOSAMINE /CHOND /03040701/ [Concomitant]
     Indication: RHEUMATOID ARTHRITIS
     Dosage: UNK, UNK
     Dates: start: 20070101
  17. PREMARIN [Concomitant]
     Indication: HORMONE REPLACEMENT THERAPY
  18. CLARITIN /USA/ [Concomitant]
     Indication: HYPERSENSITIVITY
     Dosage: UNK, UNK
     Dates: start: 20071101
  19. PREDNISONE [Concomitant]
     Indication: RHEUMATOID ARTHRITIS
     Dosage: 10 MG, UNK
     Dates: start: 20100308
  20. SPIRIVA [Concomitant]
     Indication: DYSPNOEA
     Dosage: UNK, DAILY (1/D)
     Dates: start: 20091101
  21. VITAMIN E [Concomitant]
     Indication: SUPPLEMENTATION THERAPY
     Dosage: UNK, UNK
     Dates: start: 19990101
  22. IRON [Concomitant]
     Indication: ANAEMIA
     Dosage: UNK, DAILY (1/D)
     Route: 048
     Dates: start: 20100204
  23. TESSALON [Concomitant]
     Indication: COUGH
     Dosage: UNK, UNK
     Dates: start: 20071101
  24. BACTRIM [Concomitant]
     Indication: PROPHYLAXIS
     Dosage: UNK, QOD
     Dates: start: 20090301
  25. PROCHLORPERAZINE [Concomitant]
     Indication: NAUSEA
     Dates: start: 20090108
  26. DEXAMETHASONE [Concomitant]
     Indication: PROPHYLAXIS
     Dates: start: 20100106
  27. PERI-COLACE [Concomitant]
     Indication: CONSTIPATION
     Dosage: UNK, UNK
     Dates: start: 20070114
  28. PANTOPRAZOLE [Concomitant]
     Indication: GASTROOESOPHAGEAL REFLUX DISEASE
     Dates: start: 20090114
  29. OXYCONTIN [Concomitant]
     Indication: PAIN
     Dosage: UNK, UNK
     Dates: start: 20100408
  30. OXYCODONE [Concomitant]
     Indication: PAIN
     Dates: start: 20091001
  31. ALLEGRA [Concomitant]
     Indication: HYPERSENSITIVITY
     Dosage: 180 MG, DAILY (1/D)
     Route: 048
     Dates: start: 20100420
  32. ALBUTEROL [Concomitant]
     Indication: DYSPNOEA
     Dates: start: 20090101
  33. AVELOX [Concomitant]
     Indication: PNEUMONIA
     Dates: start: 20100408

REACTIONS (3)
  - GASTROINTESTINAL HAEMORRHAGE [None]
  - HAEMORRHAGIC ANAEMIA [None]
  - PEPTIC ULCER [None]
